FAERS Safety Report 7777154-2 (Version None)
Quarter: 2011Q3

REPORT INFORMATION
  Report Type: 
  Country: None (occurrence: None)
  Receive Date: 20110922
  Receipt Date: 20110912
  Transmission Date: 20111222
  Serious: Yes (Other)
  Sender: FDA-Public Use
  Company Number: 2011SP042883

PATIENT
  Age: 47 Year
  Sex: Female

DRUGS (1)
  1. MIRTAZAPINE [Suspect]
     Indication: BURNOUT SYNDROME
     Dosage: 15 MG;QD;PO
     Route: 048
     Dates: start: 20110902

REACTIONS (6)
  - CHILLS [None]
  - CARDIOVASCULAR DISORDER [None]
  - INSOMNIA [None]
  - HEART RATE INCREASED [None]
  - BLOOD PRESSURE INCREASED [None]
  - HYPERHIDROSIS [None]
